FAERS Safety Report 9717757 (Version 1)
Quarter: 2013Q4

REPORT INFORMATION
  Report Type: Spontaneous
  Country: US (occurrence: US)
  Receive Date: 20131127
  Receipt Date: 20131127
  Transmission Date: 20140711
  Serious: Yes (Other)
  Sender: FDA-Public Use
  Company Number: US-VIIV HEALTHCARE LIMITED-A1051076A

PATIENT
  Sex: 0

DRUGS (3)
  1. TIVICAY [Suspect]
     Indication: HIV INFECTION
     Route: 048
  2. TRUVADA [Suspect]
     Indication: HIV INFECTION
     Route: 065
  3. VIRAMUNE [Concomitant]

REACTIONS (3)
  - Pancreatitis [Unknown]
  - Nausea [Unknown]
  - Lipase increased [Unknown]
